FAERS Safety Report 23566637 (Version 1)
Quarter: 2024Q1

REPORT INFORMATION
  Report Type: Spontaneous
  Country: DE (occurrence: DE)
  Receive Date: 20240226
  Receipt Date: 20240226
  Transmission Date: 20240409
  Serious: Yes (Other)
  Sender: FDA-Public Use
  Company Number: DE-Albireo AB-2022ALB000247

PATIENT
  Age: 35 Year
  Sex: Male

DRUGS (5)
  1. BYLVAY [Suspect]
     Active Substance: ODEVIXIBAT
     Indication: Progressive familial intrahepatic cholestasis
     Route: 048
     Dates: start: 202208
  2. BYLVAY [Suspect]
     Active Substance: ODEVIXIBAT
     Indication: Progressive familial intrahepatic cholestasis
     Route: 048
     Dates: start: 2022
  3. URSODIOL [Concomitant]
     Active Substance: URSODIOL
  4. BEZAFIBRATE [Concomitant]
     Active Substance: BEZAFIBRATE
  5. RIFAMPIN [Concomitant]
     Active Substance: RIFAMPIN

REACTIONS (12)
  - Hepatic function abnormal [Not Recovered/Not Resolved]
  - Transaminases increased [Not Recovered/Not Resolved]
  - Blood bilirubin increased [Not Recovered/Not Resolved]
  - Increased appetite [Recovered/Resolved]
  - Blood glucose increased [Unknown]
  - Weight increased [Recovered/Resolved]
  - Pruritus [Unknown]
  - Abdominal discomfort [Recovered/Resolved]
  - Diarrhoea [Recovered/Resolved]
  - Increased insulin requirement [Recovered/Resolved]
  - Diarrhoea [Unknown]
  - Abdominal discomfort [Unknown]

NARRATIVE: CASE EVENT DATE: 20220101
